FAERS Safety Report 21457500 (Version 1)
Quarter: 2022Q4

REPORT INFORMATION
  Report Type: Spontaneous
  Country: FR (occurrence: FR)
  Receive Date: 20221014
  Receipt Date: 20221014
  Transmission Date: 20230113
  Serious: Yes (Hospitalization)
  Sender: FDA-Public Use
  Company Number: None

PATIENT
  Age: 56 Year
  Sex: Female

DRUGS (8)
  1. CARBOPLATIN [Suspect]
     Active Substance: CARBOPLATIN
     Indication: Lung adenocarcinoma
     Dates: start: 20171110, end: 20180117
  2. ALIMTA [Suspect]
     Active Substance: PEMETREXED DISODIUM
     Indication: Lung adenocarcinoma
     Dates: start: 20170904, end: 20180117
  3. CISPLATIN [Suspect]
     Active Substance: CISPLATIN
     Indication: Lung adenocarcinoma
     Dates: start: 20170904, end: 20170928
  4. DURVALUMAB [Suspect]
     Active Substance: DURVALUMAB
     Indication: Lung adenocarcinoma
     Dates: start: 20180302, end: 20180605
  5. DURVALUMAB [Suspect]
     Active Substance: DURVALUMAB
     Indication: Lung adenocarcinoma
     Dates: start: 20190104, end: 20190222
  6. DURVALUMAB [Suspect]
     Active Substance: DURVALUMAB
     Indication: Lung adenocarcinoma
     Dates: start: 20180919, end: 20181017
  7. DURVALUMAB [Suspect]
     Active Substance: DURVALUMAB
     Indication: Lung adenocarcinoma
     Dates: start: 20181121, end: 20181212
  8. DURVALUMAB [Suspect]
     Active Substance: DURVALUMAB
     Indication: Lung adenocarcinoma
     Dates: start: 20180619, end: 20180905

REACTIONS (1)
  - Ventricular dysfunction [Not Recovered/Not Resolved]

NARRATIVE: CASE EVENT DATE: 20220405
